FAERS Safety Report 9365361 (Version 1)
Quarter: 2013Q2

REPORT INFORMATION
  Report Type: Report from Study
  Country: US (occurrence: US)
  Receive Date: 20130625
  Receipt Date: 20130625
  Transmission Date: 20140414
  Serious: Yes (Hospitalization, Other)
  Sender: FDA-Public Use
  Company Number: US-PFIZER INC-2009247499

PATIENT
  Age: 70 Year
  Sex: Female
  Weight: 82.54 kg

DRUGS (16)
  1. LYRICA [Suspect]
     Indication: NEUROPATHY PERIPHERAL
     Dosage: UNK
     Route: 048
  2. NEURONTIN [Suspect]
     Indication: NEUROPATHY PERIPHERAL
     Dosage: UNK
     Route: 048
  3. LOTENSIN [Suspect]
     Indication: HYPERTENSION
     Dosage: 20 MG, DAILY
  4. POTASSIUM [Concomitant]
     Dosage: UNK
     Route: 048
  5. NEXIUM [Concomitant]
     Dosage: UNK
     Route: 048
  6. MOBIC [Concomitant]
     Dosage: UNK
     Route: 048
  7. IMDUR [Concomitant]
     Dosage: UNK
     Route: 048
  8. TENORMIN [Concomitant]
     Dosage: UNK
     Route: 048
  9. ALLOPURINOL [Concomitant]
     Dosage: UNK
     Route: 048
  10. AMARYL [Concomitant]
     Dosage: UNK
     Route: 048
  11. LASIX [Concomitant]
     Dosage: UNK
     Route: 048
  12. ALPRAZOLAM [Concomitant]
     Dosage: 0.25 MG, UNK
     Route: 048
  13. LORTAB [Concomitant]
     Dosage: UNK
     Route: 048
  14. CHOLESTYRAMINE [Concomitant]
     Dosage: 4 MG, UNK
     Route: 048
  15. LANTUS [Concomitant]
     Indication: DIABETES MELLITUS
     Dosage: UNK
     Route: 058
  16. LANTUS [Concomitant]
     Dosage: UNK

REACTIONS (12)
  - Drug hypersensitivity [Unknown]
  - Pharyngeal oedema [Unknown]
  - Tongue oedema [Unknown]
  - Dyspnoea [Unknown]
  - Tongue disorder [Unknown]
  - Foot fracture [Unknown]
  - Fall [Unknown]
  - Arthropathy [Unknown]
  - Red blood cell count decreased [Unknown]
  - Blood uric acid increased [Unknown]
  - Drug ineffective [Unknown]
  - Pain in extremity [Unknown]
